APPROVED DRUG PRODUCT: UNISOM
Active Ingredient: DOXYLAMINE SUCCINATE
Strength: 25MG
Dosage Form/Route: TABLET;ORAL
Application: N018066 | Product #001
Applicant: CHATTEM INC
Approved: Approved Prior to Jan 1, 1982 | RLD: Yes | RS: Yes | Type: OTC